FAERS Safety Report 6192491-3 (Version None)
Quarter: 2009Q2

REPORT INFORMATION
  Report Type: 
  Country: None (occurrence: None)
  Receive Date: 20090513
  Receipt Date: 20090506
  Transmission Date: 20091009
  Serious: Yes (Hospitalization)
  Sender: FDA-Public Use
  Company Number: ADE2009-0604

PATIENT
  Age: 73 Year
  Sex: Female

DRUGS (11)
  1. FLUOXETINE HCL [Suspect]
     Indication: DEPRESSION
     Dosage: 20 MG - ORAL
     Route: 048
     Dates: end: 20090101
  2. TAMOXIFEN CITRATE [Suspect]
     Indication: BREAST CANCER
     Dosage: 20MG - ORAL
     Route: 048
     Dates: start: 20080601, end: 20090101
  3. AMLODIPINE [Concomitant]
  4. ASPIRIN [Concomitant]
  5. ACETAMINOPHEN W/ CODEINE [Concomitant]
  6. FOLIC ACID [Concomitant]
  7. HYDROXOCOBALAMIN [Concomitant]
  8. LANSOPRAZOLE [Concomitant]
  9. SIMVASTATIN [Concomitant]
  10. THIAMINE HCL [Concomitant]
  11. VITAMIN B COMPLEX CAP [Concomitant]

REACTIONS (1)
  - INTERSTITIAL LUNG DISEASE [None]
